FAERS Safety Report 11239456 (Version 24)
Quarter: 2021Q4

REPORT INFORMATION
  Report Type: Other
  Country: CA (occurrence: None)
  Receive Date: 20150706
  Receipt Date: 20211222
  Transmission Date: 20220303
  Serious: Yes (Hospitalization, Other)
  Sender: FDA-Public Use
  Company Number: CA-ROCHE-1153652

PATIENT
  Age: 69 Year
  Sex: Female
  Weight: 50.8 kg

DRUGS (15)
  1. RITUXAN [Suspect]
     Active Substance: RITUXIMAB
     Indication: Rheumatoid arthritis
     Dosage: DAY 1 AND DAY 15
     Route: 041
     Dates: start: 20121105
  2. RITUXAN [Suspect]
     Active Substance: RITUXIMAB
     Indication: Lymphoma
  3. ATACAND [Concomitant]
     Active Substance: CANDESARTAN CILEXETIL
  4. CELEBREX [Concomitant]
     Active Substance: CELECOXIB
  5. TYLENOL [Concomitant]
     Active Substance: ACETAMINOPHEN
     Route: 048
     Dates: start: 20121105, end: 20200129
  6. TYLENOL [Concomitant]
     Active Substance: ACETAMINOPHEN
     Route: 048
     Dates: start: 20200917
  7. PREVACID [Concomitant]
     Active Substance: LANSOPRAZOLE
  8. DIPHENHYDRAMINE HYDROCHLORIDE [Concomitant]
     Active Substance: DIPHENHYDRAMINE HYDROCHLORIDE
     Indication: Premedication
     Route: 048
     Dates: start: 20121105
  9. METHYLPREDNISOLONE [Concomitant]
     Active Substance: METHYLPREDNISOLONE
     Route: 042
     Dates: start: 20121105
  10. CANDESARTAN [Concomitant]
     Active Substance: CANDESARTAN
  11. NORVASC [Concomitant]
     Active Substance: AMLODIPINE BESYLATE
     Indication: Blood pressure measurement
     Dosage: IN THE EVENING
  12. DOCUSATE [Concomitant]
     Active Substance: DOCUSATE
  13. SULFASALAZINE [Concomitant]
     Active Substance: SULFASALAZINE
  14. SYNTHROID [Concomitant]
     Active Substance: LEVOTHYROXINE SODIUM
  15. CALCIUM [Concomitant]
     Active Substance: CALCIUM

REACTIONS (26)
  - Hyponatraemia [Recovered/Resolved]
  - Delirium [Recovered/Resolved]
  - Hypertension [Not Recovered/Not Resolved]
  - Angina pectoris [Recovered/Resolved]
  - Arthropathy [Unknown]
  - Cardiac flutter [Unknown]
  - Headache [Recovered/Resolved]
  - Nausea [Recovered/Resolved]
  - Dry mouth [Unknown]
  - Pain [Unknown]
  - Skin plaque [Recovered/Resolved]
  - Infusion related reaction [Unknown]
  - Blood pressure increased [Unknown]
  - Oxygen saturation decreased [Unknown]
  - Heart rate decreased [Unknown]
  - Pharyngeal paraesthesia [Recovered/Resolved]
  - Blood pressure systolic increased [Unknown]
  - Oropharyngeal pain [Not Recovered/Not Resolved]
  - Nasopharyngitis [Not Recovered/Not Resolved]
  - Nasal congestion [Recovered/Resolved]
  - Heart rate decreased [Unknown]
  - Off label use [Unknown]
  - Cerebrovascular accident [Recovering/Resolving]
  - Blindness unilateral [Not Recovered/Not Resolved]
  - Retinal artery thrombosis [Unknown]
  - Blood pressure diastolic abnormal [Unknown]

NARRATIVE: CASE EVENT DATE: 20121105
